FAERS Safety Report 16734223 (Version 1)
Quarter: 2020Q3

REPORT INFORMATION
  Report Type: Report from Study
  Country: HU (occurrence: HU)
  Receive Date: 20190823
  Receipt Date: 20190823
  Transmission Date: 20201105
  Serious: Yes (Hospitalization)
  Sender: FDA-Public Use
  Company Number: HU-EMD SERONO-E2B_90067270

PATIENT
  Age: 75 Year
  Sex: Male
  Weight: 83 kg

DRUGS (13)
  1. AVELUMAB [Suspect]
     Active Substance: AVELUMAB
     Indication: NEOPLASM
     Dosage: 800 MG, EVERY 2 WEEKS
     Route: 041
     Dates: start: 20190311, end: 20190311
  2. CORDARONE [Concomitant]
     Active Substance: AMIODARONE HYDROCHLORIDE
     Indication: CORONARY ARTERY STENOSIS
     Dosage: UNK, PILL
     Dates: start: 201010
  3. PANTOPRAZOL SANDOZ [Concomitant]
     Active Substance: PANTOPRAZOLE SODIUM
     Indication: NEOPLASM
     Dosage: UNK, PILL
     Dates: start: 201805
  4. EXACYL [Concomitant]
     Active Substance: TRANEXAMIC ACID
     Indication: NEOPLASM
     Dosage: UNK, PILL
     Dates: start: 201805
  5. KALIUM?R [Concomitant]
     Indication: HYPERTENSION
     Dosage: UNK, PILL
     Dates: start: 2002
  6. TENAXUM [Concomitant]
     Active Substance: RILMENIDINE
     Indication: CORONARY ARTERY STENOSIS
     Dosage: UNK, PILL
     Dates: start: 201010
  7. GLURENORM [Concomitant]
     Active Substance: GLIQUIDONE
     Indication: DIABETES MELLITUS
     Dosage: UNK, PILL
     Dates: start: 2009
  8. FURON [FUROSEMIDE] [Concomitant]
     Indication: HYPERTENSION
     Dosage: UNK, PILLS
     Dates: start: 2002
  9. GALVUS [Concomitant]
     Active Substance: VILDAGLIPTIN
     Indication: HYPERTENSION
     Dosage: UNK, PILL
     Dates: start: 2002
  10. NEBILET [Concomitant]
     Active Substance: NEBIVOLOL
     Indication: HYPERTENSION
     Dosage: UNK, PILL
     Dates: start: 2002
  11. ZOCOR [Concomitant]
     Active Substance: SIMVASTATIN
     Indication: CORONARY ARTERY STENOSIS
     Dosage: UNK, PILL
     Dates: start: 201010
  12. DICYNONE [Concomitant]
     Active Substance: ETHAMSYLATE
     Indication: NEOPLASM
     Dosage: UNK, PILL
     Dates: start: 201805
  13. TALAZOPARIB. [Suspect]
     Active Substance: TALAZOPARIB
     Indication: NEOPLASM
     Dosage: 0.75 MG, ONCE DAILY
     Route: 048
     Dates: start: 20190311, end: 20190325

REACTIONS (3)
  - Thrombocytopenia [Recovered/Resolved]
  - Autoimmune neutropenia [Recovered/Resolved]
  - Anaemia [Recovered/Resolved]

NARRATIVE: CASE EVENT DATE: 20190325
